FAERS Safety Report 21604311 (Version 1)
Quarter: 2022Q4

REPORT INFORMATION
  Report Type: Report from Study
  Country: US (occurrence: US)
  Receive Date: 20221116
  Receipt Date: 20221116
  Transmission Date: 20230112
  Serious: No
  Sender: FDA-Public Use
  Company Number: US-ABBVIE-4169104

PATIENT
  Sex: Female

DRUGS (4)
  1. SKYRIZI [Suspect]
     Active Substance: RISANKIZUMAB-RZAA
     Indication: Psoriasis
     Route: 058
  2. Pfizer BioNTech COVID-19 vaccin [Concomitant]
     Indication: COVID-19 immunisation
     Dosage: ONE IN ONCE 1ST DOSE
     Route: 030
     Dates: start: 20210121, end: 20210121
  3. Pfizer BioNTech COVID-19 vaccin [Concomitant]
     Indication: COVID-19 immunisation
     Dosage: ONE IN ONCE 2ND DOSE
     Route: 030
     Dates: start: 20210225, end: 20210225
  4. Pfizer BioNTech COVID-19 vaccin [Concomitant]
     Indication: COVID-19 immunisation
     Dosage: ONE IN ONCE 3RD DOSE
     Route: 030
     Dates: start: 20210929, end: 20210929

REACTIONS (1)
  - Psoriasis [Recovered/Resolved]
